FAERS Safety Report 6121163-6 (Version None)
Quarter: 2009Q1

REPORT INFORMATION
  Report Type: 
  Country: None (occurrence: None)
  Receive Date: 20090317
  Receipt Date: 20090309
  Transmission Date: 20090719
  Serious: Yes (Life-Threatening, Hospitalization)
  Sender: FDA-Public Use
  Company Number: B0564096A

PATIENT
  Age: 34 Year
  Sex: Female

DRUGS (3)
  1. ARIXTRA [Suspect]
     Indication: DRUG USE FOR UNKNOWN INDICATION
     Route: 058
     Dates: start: 20090104, end: 20090109
  2. CARBOPLATIN [Concomitant]
     Route: 065
     Dates: start: 20081230
  3. TAXOL [Concomitant]
     Route: 065
     Dates: start: 20081230

REACTIONS (2)
  - HAEMOGLOBIN S DECREASED [None]
  - PUNCTURE SITE HAEMORRHAGE [None]
